FAERS Safety Report 6127267-6 (Version None)
Quarter: 2009Q1

REPORT INFORMATION
  Report Type: 
  Country: None (occurrence: None)
  Receive Date: 20090319
  Receipt Date: 20090305
  Transmission Date: 20090719
  Serious: Yes (Hospitalization)
  Sender: FDA-Public Use
  Company Number: 02100-JPN-07-0551

PATIENT
  Age: 73 Year
  Sex: Female

DRUGS (2)
  1. PLAVIX [Suspect]
     Indication: CEREBRAL INFARCTION
     Dosage: 75 MG, DAILY DOSE, ORAL
     Route: 048
     Dates: start: 20051011, end: 20060507
  2. DOXAZOSIN (DOXAZOSIN) [Concomitant]

REACTIONS (2)
  - HYPOAESTHESIA ORAL [None]
  - UPPER GASTROINTESTINAL HAEMORRHAGE [None]
